FAERS Safety Report 9465011 (Version 7)
Quarter: 2015Q1

REPORT INFORMATION
  Report Type: Spontaneous
  Country: US (occurrence: US)
  Receive Date: 20130819
  Receipt Date: 20150327
  Transmission Date: 20150721
  Serious: Yes (Hospitalization, Disabling, Other)
  Sender: FDA-Public Use
  Company Number: US-009507513-1308USA008276

PATIENT
  Sex: Female

DRUGS (5)
  1. ALENDRONATE SODIUM. [Suspect]
     Active Substance: ALENDRONATE SODIUM
     Indication: OSTEOPOROSIS
     Dosage: 70 MG, UNK
     Route: 048
     Dates: start: 20080714, end: 201105
  2. CALCIUM (UNSPECIFIED) (+) VITAMIN D (UNSPECIFIED) [Concomitant]
     Active Substance: CALCIUM CARBONATE\VITAMIN D
     Dosage: 1 PILL PER DAY
     Dates: start: 1990
  3. FOSAMAX [Suspect]
     Active Substance: ALENDRONATE SODIUM
     Indication: OSTEOPOROSIS
     Dosage: 10 MG, UNK
     Route: 048
     Dates: start: 1996, end: 200109
  4. FOSAMAX [Suspect]
     Active Substance: ALENDRONATE SODIUM
     Dosage: 70 MG, UNK
     Route: 048
     Dates: start: 20010401, end: 20081101
  5. CENTRUM SILVER [Concomitant]
     Active Substance: VITAMINS
     Dosage: 1 PILL PER DAY
     Dates: start: 1990

REACTIONS (19)
  - Low turnover osteopathy [Unknown]
  - Neoplasm malignant [Unknown]
  - Adverse event [Unknown]
  - Foot operation [Unknown]
  - Drug ineffective [Unknown]
  - Joint arthroplasty [Unknown]
  - Hypothyroidism [Unknown]
  - Osteoarthritis [Unknown]
  - Gastrooesophageal reflux disease [Unknown]
  - Intramedullary rod insertion [Unknown]
  - Anaemia [Recovering/Resolving]
  - Ear operation [Unknown]
  - Femur fracture [Unknown]
  - Thyroidectomy [Unknown]
  - Cataract operation [Unknown]
  - Hypertension [Unknown]
  - Emphysema [Unknown]
  - Carpal tunnel decompression [Unknown]
  - Osteopenia [Unknown]

NARRATIVE: CASE EVENT DATE: 1999
